FAERS Safety Report 25290865 (Version 2)
Quarter: 2025Q2

REPORT INFORMATION
  Report Type: Spontaneous
  Country: US (occurrence: US)
  Receive Date: 20250510
  Receipt Date: 20250510
  Transmission Date: 20250717
  Serious: No
  Sender: SANOFI AVENTIS
  Company Number: US-SA-2025SA117377

PATIENT
  Age: 1 Year
  Sex: Male

DRUGS (2)
  1. ALTUVIIIO [Suspect]
     Active Substance: EFANESOCTOCOG ALFA
     Dosage: 250/500 UNITS, QW
     Route: 042
  2. ALTUVIIIO [Suspect]
     Active Substance: EFANESOCTOCOG ALFA
     Route: 042

REACTIONS (5)
  - Fall [Unknown]
  - Head injury [Unknown]
  - Skin abrasion [Unknown]
  - Contusion [Unknown]
  - Factor VIII activity decreased [Unknown]

NARRATIVE: CASE EVENT DATE: 20250410
